FAERS Safety Report 22908466 (Version 3)
Quarter: 2023Q4

REPORT INFORMATION
  Report Type: Spontaneous
  Country: US (occurrence: US)
  Receive Date: 20230905
  Receipt Date: 20231030
  Transmission Date: 20240110
  Serious: No
  Sender: FDA-Public Use
  Company Number: US-PFIZER INC-PV202300150166

PATIENT
  Age: 74 Year
  Sex: Female

DRUGS (2)
  1. BRAFTOVI [Suspect]
     Active Substance: ENCORAFENIB
     Dosage: 4 DF, DAILY
  2. BRAFTOVI [Suspect]
     Active Substance: ENCORAFENIB
     Dosage: 8 DF, DAILY

REACTIONS (3)
  - Accidental overdose [Unknown]
  - Brain fog [Unknown]
  - Malaise [Unknown]
